FAERS Safety Report 15325425 (Version 1)
Quarter: 2018Q4

REPORT INFORMATION
  Report Type: Spontaneous
  Country: FR (occurrence: FR)
  Receive Date: 20180828
  Receipt Date: 20180828
  Transmission Date: 20190204
  Serious: Yes (Hospitalization)
  Sender: FDA-Public Use
  Company Number: FR-SA-2018SA224739

PATIENT
  Age: 50 Year
  Sex: Male
  Weight: 62 kg

DRUGS (11)
  1. DESLORATADINE. [Suspect]
     Active Substance: DESLORATADINE
     Indication: RASH
     Dosage: UNK UNK, UNK
     Route: 048
     Dates: start: 201706
  2. LOVENOX [Suspect]
     Active Substance: ENOXAPARIN SODIUM
     Dosage: UNK
     Route: 058
     Dates: start: 201705, end: 20170526
  3. SPIRONOLACTONE. [Suspect]
     Active Substance: SPIRONOLACTONE
     Indication: PRODUCT USED FOR UNKNOWN INDICATION
     Dosage: UNK, UNK
     Route: 048
     Dates: start: 20170508, end: 20170526
  4. ESOMEPRAZOLE MAGNESIUM TRIHYDRATE [Suspect]
     Active Substance: ESOMEPRAZOLE MAGNESIUM
     Indication: PRODUCT USED FOR UNKNOWN INDICATION
     Dosage: UNK
     Route: 048
     Dates: start: 201705, end: 20170601
  5. AUGMENTIN [Suspect]
     Active Substance: AMOXICILLIN\CLAVULANATE POTASSIUM
     Indication: ANTIBIOTIC PROPHYLAXIS
     Dosage: UNK UNK, UNK
     Route: 065
     Dates: start: 201705, end: 20170526
  6. PROPRANOLOL HYDROCHLORIDE. [Suspect]
     Active Substance: PROPRANOLOL HYDROCHLORIDE
     Dosage: UNK UNK, UNK
     Route: 048
     Dates: start: 201706, end: 201706
  7. FUROSEMIDE. [Suspect]
     Active Substance: FUROSEMIDE
     Dosage: UNK UNK, UNK
     Route: 048
     Dates: start: 20170508, end: 20170526
  8. CEFTRIAXONE SODIUM. [Suspect]
     Active Substance: CEFTRIAXONE SODIUM
     Dosage: UNK UNK, UNK
     Route: 065
     Dates: start: 201705, end: 20170526
  9. NERISONE [Suspect]
     Active Substance: DIFLUCORTOLONE VALERATE
     Indication: RASH
     Dosage: UNK UNK, UNK
     Route: 003
     Dates: start: 201706, end: 201706
  10. PANTOPRAZOLE [Suspect]
     Active Substance: PANTOPRAZOLE
     Dosage: UNK UNK, UNK
     Route: 048
     Dates: start: 20170508, end: 201706
  11. SANDOSTATINE [Suspect]
     Active Substance: OCTREOTIDE ACETATE
     Indication: PRODUCT USED FOR UNKNOWN INDICATION
     Dosage: UNK
     Route: 058
     Dates: start: 201705, end: 20170526

REACTIONS (1)
  - Dermatitis bullous [Recovered/Resolved]

NARRATIVE: CASE EVENT DATE: 201706
